FAERS Safety Report 7427938-5 (Version None)
Quarter: 2011Q2

REPORT INFORMATION
  Report Type: 
  Country: None (occurrence: None)
  Receive Date: 20110421
  Receipt Date: 20110413
  Transmission Date: 20111010
  Serious: Yes (Other)
  Sender: FDA-Public Use
  Company Number: US-ASTRAZENECA-2009UW12952

PATIENT
  Age: 38 Year
  Sex: Male
  Weight: 127 kg

DRUGS (4)
  1. ZYPREXA [Concomitant]
     Dates: start: 19980201, end: 19980901
  2. SEROQUEL [Suspect]
     Indication: DEPRESSION
     Route: 048
     Dates: start: 20010101
  3. CLOZARIL [Concomitant]
  4. SEROQUEL [Suspect]
     Indication: SCHIZOPHRENIA
     Route: 048
     Dates: start: 20010101

REACTIONS (4)
  - GALLBLADDER DISORDER [None]
  - CYST [None]
  - ARTHROPATHY [None]
  - TYPE 2 DIABETES MELLITUS [None]
